FAERS Safety Report 7270083-2 (Version None)
Quarter: 2011Q1

REPORT INFORMATION
  Report Type: 
  Country: None (occurrence: None)
  Receive Date: 20110202
  Receipt Date: 20110131
  Transmission Date: 20110831
  Serious: Yes (Other)
  Sender: FDA-Public Use
  Company Number: HU-ROCHE-756636

PATIENT
  Sex: Male

DRUGS (4)
  1. ROACTEMRA [Suspect]
     Indication: RHEUMATOID ARTHRITIS
     Dosage: ROUTE: INFUSION, 8 MG/KG
     Route: 042
     Dates: start: 20101216
  2. TREXAN [Concomitant]
  3. MEDROL [Concomitant]
     Dosage: FREQUENCY: DAILY 1X
  4. SALAZOPYRIN [Concomitant]

REACTIONS (1)
  - BLOOD PRESSURE DECREASED [None]
